FAERS Safety Report 4952587-8 (Version None)
Quarter: 2006Q1

REPORT INFORMATION
  Report Type: 
  Country: None (occurrence: None)
  Receive Date: 20060317
  Receipt Date: 20060228
  Transmission Date: 20060701
  Serious: Yes (Other)
  Sender: FDA-Public Use
  Company Number: CA200602001554

PATIENT
  Age: 11 Year
  Sex: Male
  Weight: 40.8 kg

DRUGS (1)
  1. STRATTERA [Suspect]
     Indication: ATTENTION DEFICIT/HYPERACTIVITY DISORDER
     Dosage: 18 MG, ORAL
     Route: 048
     Dates: start: 20050527, end: 20050529

REACTIONS (3)
  - HEAD BANGING [None]
  - INTENTIONAL SELF-INJURY [None]
  - LACERATION [None]
